FAERS Safety Report 5685041-9 (Version None)
Quarter: 2008Q1

REPORT INFORMATION
  Report Type: 
  Country: None (occurrence: None)
  Receive Date: 20080328
  Receipt Date: 19980724
  Transmission Date: 20080703
  Serious: Yes (Death, Other)
  Sender: FDA-Public Use
  Company Number: ES-ROCHE-103350

PATIENT
  Age: 70 Year
  Sex: Female

DRUGS (2)
  1. TICLID [Suspect]
     Route: 048
     Dates: start: 19980307
  2. ANGIOTENSIN CONVERTING ENZYME INHIBITOR [Concomitant]
     Route: 048

REACTIONS (4)
  - BONE MARROW FAILURE [None]
  - HEPATITIS CHOLESTATIC [None]
  - RENAL FAILURE [None]
  - SEPSIS [None]
